FAERS Safety Report 14843730 (Version 2)
Quarter: 2018Q3

REPORT INFORMATION
  Report Type: Report from Study
  Country: US (occurrence: US)
  Receive Date: 20180503
  Receipt Date: 20180921
  Transmission Date: 20181010
  Serious: Yes (Hospitalization)
  Sender: FDA-Public Use
  Company Number: US-ACTELION-A-NJ2018-165710

PATIENT
  Age: 70 Year
  Sex: Female

DRUGS (2)
  1. OPSUMIT [Suspect]
     Active Substance: MACITENTAN
     Indication: PRODUCT USED FOR UNKNOWN INDICATION
     Dosage: 10 MG, QD
     Route: 048
     Dates: start: 201709
  2. OXYGEN. [Concomitant]
     Active Substance: OXYGEN

REACTIONS (10)
  - Therapy non-responder [Unknown]
  - Anxiety [Unknown]
  - Cough [Unknown]
  - Memory impairment [Unknown]
  - Nasopharyngitis [Unknown]
  - Dyspnoea [Unknown]
  - Drug dose omission [Unknown]
  - Hospitalisation [Unknown]
  - Obstructive airways disorder [Unknown]
  - Fluid retention [Not Recovered/Not Resolved]

NARRATIVE: CASE EVENT DATE: 201709
